FAERS Safety Report 21333158 (Version 2)
Quarter: 2022Q3

REPORT INFORMATION
  Report Type: Spontaneous
  Country: DE (occurrence: DE)
  Receive Date: 20220914
  Receipt Date: 20220929
  Transmission Date: 20221027
  Serious: Yes (Hospitalization, Other)
  Sender: FDA-Public Use
  Company Number: DE-ITALFARMACO-2021-000066

PATIENT
  Age: 59 Year
  Sex: Female

DRUGS (8)
  1. HEPARIN [Suspect]
     Active Substance: HEPARIN SODIUM
     Indication: Anticoagulant therapy
     Dosage: BOLUS OF UNFRACTIONATED HEPARIN
     Route: 040
  2. HEPARIN [Suspect]
     Active Substance: HEPARIN SODIUM
     Dosage: THERAPEUTIC-DOSE
  3. ENOXAPARIN SODIUM [Suspect]
     Active Substance: ENOXAPARIN SODIUM
     Indication: Deep vein thrombosis
     Dosage: 1 MG/KG, BID
     Route: 058
  4. ENOXAPARIN SODIUM [Suspect]
     Active Substance: ENOXAPARIN SODIUM
     Indication: Anticoagulant therapy
  5. DALTEPARIN [Suspect]
     Active Substance: DALTEPARIN
     Indication: Deep vein thrombosis
     Dosage: 5000 AFXAU TWICE A DAY
     Route: 058
  6. DALTEPARIN [Suspect]
     Active Substance: DALTEPARIN
     Indication: Anticoagulant therapy
  7. TICAGRELOR [Concomitant]
     Active Substance: TICAGRELOR
  8. ASPIRIN [Concomitant]
     Active Substance: ASPIRIN

REACTIONS (3)
  - Pulmonary embolism [Recovered/Resolved]
  - Heparin-induced thrombocytopenia [Recovered/Resolved]
  - Platelet count decreased [Recovered/Resolved]
